FAERS Safety Report 11083090 (Version 1)
Quarter: 2015Q2

REPORT INFORMATION
  Report Type: Spontaneous
  Country: FR (occurrence: FR)
  Receive Date: 20150501
  Receipt Date: 20150501
  Transmission Date: 20150821
  Serious: Yes (Congenital Anomaly, Other)
  Sender: FDA-Public Use
  Company Number: FR-MYLANLABS-2015M1014708

PATIENT

DRUGS (1)
  1. SODIUM VALPROATE [Suspect]
     Active Substance: VALPROATE SODIUM
     Dosage: 1000 MG/J
     Route: 064

REACTIONS (3)
  - Foetal exposure during pregnancy [Unknown]
  - Autism [Unknown]
  - Foetal anticonvulsant syndrome [Unknown]
